FAERS Safety Report 7013158-5 (Version None)
Quarter: 2010Q3

REPORT INFORMATION
  Report Type: 
  Country: None (occurrence: None)
  Receive Date: 20100924
  Receipt Date: 20100917
  Transmission Date: 20110219
  Serious: Yes (Hospitalization, Other)
  Sender: FDA-Public Use
  Company Number: US-PFIZER INC-2010119046

PATIENT
  Sex: Male
  Weight: 97.5 kg

DRUGS (3)
  1. FLAGYL [Suspect]
     Indication: WOUND SEPSIS
     Dosage: 1500 MG, 3X/DAY
     Route: 048
  2. VANCOMYCIN [Concomitant]
     Dosage: UNK
  3. CEFAZOLIN [Concomitant]
     Dosage: UNK

REACTIONS (5)
  - DIARRHOEA [None]
  - DYSPNOEA [None]
  - NAUSEA [None]
  - OXYGEN SATURATION DECREASED [None]
  - WOUND SEPSIS [None]
